FAERS Safety Report 19241738 (Version 1)
Quarter: 2021Q2

REPORT INFORMATION
  Report Type: Spontaneous
  Country: US (occurrence: US)
  Receive Date: 20210511
  Receipt Date: 20210511
  Transmission Date: 20210717
  Serious: Yes (Other)
  Sender: FDA-Public Use
  Company Number: US-SUN PHARMACEUTICAL INDUSTRIES LTD-2021R1-295560

PATIENT
  Age: 70 Year
  Sex: Female

DRUGS (6)
  1. CARBIDOPA AND LEVODOPA [Suspect]
     Active Substance: CARBIDOPA\LEVODOPA
     Indication: PARKINSON^S DISEASE
     Dosage: UNK, BID (1.5 TABLETS AT NIGHT AND ONE TABLET AT 4 A.M)
     Route: 065
  2. ROPINIROLE. [Concomitant]
     Active Substance: ROPINIROLE
     Indication: PARKINSON^S DISEASE
     Dosage: 5 MILLIGRAM, TID
     Route: 065
  3. CARBIDOPA AND LEVODOPA [Suspect]
     Active Substance: CARBIDOPA\LEVODOPA
     Indication: PARKINSON^S DISEASE
     Dosage: UNK, DAILY (10?14 TABLETS)
     Route: 065
  4. OLANZAPINE. [Suspect]
     Active Substance: OLANZAPINE
     Indication: PSYCHIATRIC SYMPTOM
     Dosage: UNK
     Route: 065
  5. ESCITALOPRAM [Concomitant]
     Active Substance: ESCITALOPRAM OXALATE
     Indication: PRODUCT USED FOR UNKNOWN INDICATION
     Dosage: 20 MILLIGRAM, DAILY
     Route: 065
  6. QUETIAPINE. [Suspect]
     Active Substance: QUETIAPINE
     Indication: PSYCHIATRIC SYMPTOM
     Dosage: 12.5 MILLIGRAM, QD
     Route: 065

REACTIONS (3)
  - Condition aggravated [Unknown]
  - Drug dependence [Unknown]
  - Extra dose administered [Unknown]
